FAERS Safety Report 7776229 (Version 4)
Quarter: 2012Q4

REPORT INFORMATION
  Report Type: 
  Country: CA (occurrence: CA)
  Receive Date: 20110127
  Receipt Date: 20121107
  Transmission Date: 20130627
  Serious: Yes (Death, Hospitalization, Other)
  Sender: FDA-Public Use
  Company Number: PHHY2010CA60889

PATIENT
  Sex: Male

DRUGS (7)
  1. SANDOSTATIN LAR [Suspect]
     Indication: INSULINOMA
     Dosage: 20 mg, QMO
     Route: 030
     Dates: start: 20070201
  2. SANDOSTATIN LAR [Suspect]
     Dosage: 20 mg every three weeks
     Route: 030
     Dates: start: 20090119
  3. SANDOSTATIN LAR [Suspect]
     Dosage: 20 mg, UNK
     Route: 030
     Dates: start: 20091021
  4. SANDOSTATIN LAR [Suspect]
     Dosage: 20 mg, TIW
     Route: 030
     Dates: end: 20110116
  5. LYRICA [Concomitant]
  6. LACTULOSE [Concomitant]
  7. DILAUDID [Concomitant]

REACTIONS (8)
  - Death [Fatal]
  - Ascites [Unknown]
  - Terminal state [Unknown]
  - Oedema [Not Recovered/Not Resolved]
  - Pain [Unknown]
  - Muscle spasms [Recovered/Resolved]
  - Constipation [Recovered/Resolved]
  - Flatulence [Recovered/Resolved]
